FAERS Safety Report 17129258 (Version 1)
Quarter: 2019Q4

REPORT INFORMATION
  Report Type: Spontaneous
  Country: US (occurrence: US)
  Receive Date: 20191115
  Receipt Date: 20191115
  Transmission Date: 20200122
  Serious: No
  Sender: FDA-Public Use
  Company Number: None

PATIENT
  Age: 81 Year
  Sex: Female
  Weight: 68.04 kg

DRUGS (6)
  1. ALCIUM (CALTRATE) [Concomitant]
  2. CARTIA [Concomitant]
  3. LEVOTHYROXINE 75MCG [Suspect]
     Active Substance: LEVOTHYROXINE
     Indication: HYPOTHYROIDISM
     Dosage: ?          QUANTITY:1 PILL;OTHER FREQUENCY:ONE  A.M.;?
     Route: 048
     Dates: start: 20190815
  4. LEVOTHYROXIN [Concomitant]
     Active Substance: LEVOTHYROXINE
  5. LIPITOR [Concomitant]
     Active Substance: ATORVASTATIN CALCIUM
  6. CALTRATE CALCIUM + D [Concomitant]

REACTIONS (5)
  - Fatigue [None]
  - Dry skin [None]
  - Product substitution issue [None]
  - Abdominal discomfort [None]
  - Oropharyngeal pain [None]
